FAERS Safety Report 12986383 (Version 12)
Quarter: 2017Q3

REPORT INFORMATION
  Report Type: Spontaneous
  Country: US (occurrence: US)
  Receive Date: 20161130
  Receipt Date: 20170914
  Transmission Date: 20171127
  Serious: Yes (Congenital Anomaly, Other)
  Sender: FDA-Public Use
  Company Number: PHEH2016US031107

PATIENT
  Sex: Male

DRUGS (2)
  1. ZOFRAN [Suspect]
     Active Substance: ONDANSETRON HYDROCHLORIDE
     Indication: FOETAL EXPOSURE DURING PREGNANCY
     Dosage: MOTHER DOSE: 1 MG, Q6H
     Route: 064
  2. ZOFRAN [Suspect]
     Active Substance: ONDANSETRON HYDROCHLORIDE
     Indication: FOETAL EXPOSURE DURING PREGNANCY
     Dosage: MOTHER DOSE: 4 MG, Q4H
     Route: 064

REACTIONS (21)
  - Tympanic membrane perforation [Unknown]
  - Nasal congestion [Unknown]
  - Gastroenteritis [Unknown]
  - Cleft palate [Unknown]
  - Foetal exposure during pregnancy [Unknown]
  - Bronchiolitis [Unknown]
  - Otitis media chronic [Unknown]
  - Transient tachypnoea of the newborn [Unknown]
  - Cerumen impaction [Unknown]
  - Cleft lip [Unknown]
  - Injury [Unknown]
  - Gastrooesophageal reflux disease [Unknown]
  - Eustachian tube dysfunction [Unknown]
  - Fever neonatal [Unknown]
  - Oral pain [Unknown]
  - Drooling [Unknown]
  - Eczema [Unknown]
  - Dysphagia [Unknown]
  - Nasal turbinate hypertrophy [Unknown]
  - Cough [Unknown]
  - Eye movement disorder [Unknown]
